FAERS Safety Report 17625109 (Version 2)
Quarter: 2020Q3

REPORT INFORMATION
  Report Type: Spontaneous
  Country: CA (occurrence: CA)
  Receive Date: 20200403
  Receipt Date: 20200910
  Transmission Date: 20201102
  Serious: Yes (Hospitalization, Other)
  Sender: FDA-Public Use
  Company Number: CA-ASCEND THERAPEUTICS US, LLC-2082306

PATIENT
  Age: 52 Year
  Sex: Female

DRUGS (10)
  1. CLARITIN ALLERGY AND SINUS (PSEUDOEPHEDRINE, LORATADINE) (TABLET EXTED [Concomitant]
     Route: 065
  2. ESTROGEL [Suspect]
     Active Substance: ESTRADIOL
  3. ESTROGEL [Suspect]
     Active Substance: ESTRADIOL
     Indication: PRODUCT USED FOR UNKNOWN INDICATION
     Route: 065
  4. BUDESONIDE. [Suspect]
     Active Substance: BUDESONIDE
     Route: 065
  5. CRINONE [Suspect]
     Active Substance: PROGESTERONE
  6. PRASTERONE (PRASTERONE), UNKNOWN, UNKNOWN?INDICATION FOR USE: MENOPAUS [Suspect]
     Active Substance: PRASTERONE
     Route: 067
  7. ESTROGEL [Suspect]
     Active Substance: ESTRADIOL
     Route: 065
  8. LORATADINE. [Suspect]
     Active Substance: LORATADINE
     Route: 048
  9. PRASTERONE (PRASTERONE) UNKNOWN?INDICATION FOR USE: PRODUCT USED FOR U [Suspect]
     Active Substance: PRASTERONE
     Route: 067
  10. GLICLAZIDE (GLICLAZIDE) (TABLET), UNKNOWN [Concomitant]
     Route: 065

REACTIONS (11)
  - Cellulitis [Unknown]
  - Periorbital oedema [Unknown]
  - Off label use [Unknown]
  - Swelling face [Unknown]
  - Tinnitus [Unknown]
  - Headache [Unknown]
  - Head discomfort [Unknown]
  - Butterfly rash [Unknown]
  - Photosensitivity reaction [Unknown]
  - Feeling hot [Unknown]
  - Rash [Unknown]
